FAERS Safety Report 9068359 (Version 1)
Quarter: 2013Q1

REPORT INFORMATION
  Report Type: Spontaneous
  Country: US (occurrence: US)
  Receive Date: 20130128
  Receipt Date: 20130128
  Transmission Date: 20140127
  Serious: No
  Sender: FDA-Public Use
  Company Number: US-TEVA-381879USA

PATIENT
  Age: 22 Year
  Sex: Female
  Weight: 50.85 kg

DRUGS (2)
  1. PLAN B ONE-STEP [Suspect]
     Indication: POST COITAL CONTRACEPTION
     Dosage: 1.5 MILLIGRAM DAILY;
     Route: 048
     Dates: start: 20121211, end: 20121211
  2. PLAN B ONE-STEP [Suspect]
     Dosage: 1.5 MILLIGRAM DAILY;
     Route: 048
     Dates: start: 20121213, end: 20121213

REACTIONS (2)
  - Lower extremity mass [Not Recovered/Not Resolved]
  - Upper extremity mass [Not Recovered/Not Resolved]
